FAERS Safety Report 6213300-X (Version None)
Quarter: 2009Q2

REPORT INFORMATION
  Report Type: 
  Country: None (occurrence: None)
  Receive Date: 20090603
  Receipt Date: 20090520
  Transmission Date: 20091009
  Serious: Yes (Other)
  Sender: FDA-Public Use
  Company Number: FR-ELI_LILLY_AND_COMPANY-FR200904003677

PATIENT
  Age: 89 Year
  Sex: Female
  Weight: 50.6 kg

DRUGS (7)
  1. CYMBALTA [Suspect]
     Indication: DEPRESSION
     Dosage: 60 MG, UNKNOWN
     Route: 048
     Dates: start: 20090305, end: 20090331
  2. COAPROVEL [Concomitant]
     Indication: HYPERTENSION
     Dosage: UNK (150/12.5), UNKNOWN
     Route: 048
     Dates: start: 20080908
  3. KARDEGIC [Concomitant]
     Indication: CEREBROVASCULAR ACCIDENT
     Dosage: 160 MG, UNKNOWN
     Route: 048
     Dates: start: 20071122
  4. ARICEPT [Concomitant]
     Indication: DEMENTIA
     Dosage: 10 MG, UNKNOWN
     Route: 048
     Dates: start: 20071220
  5. LYRICA [Concomitant]
     Indication: NEURALGIA
     Dosage: 100 MG, UNKNOWN
     Route: 048
     Dates: start: 20080918
  6. DURAGESIC-100 [Concomitant]
     Indication: PAIN
     Dosage: 50 UG, UNKNOWN
     Route: 062
     Dates: start: 20070506
  7. ACLASTA [Concomitant]
     Indication: OSTEOPOROTIC FRACTURE
     Route: 042
     Dates: start: 20080603

REACTIONS (1)
  - CHOREA [None]
